FAERS Safety Report 9501037 (Version 1)
Quarter: 2013Q1

REPORT INFORMATION
  Report Type: Spontaneous
  Country: US (occurrence: None)
  Receive Date: 20130116
  Receipt Date: 20130116
  Transmission Date: 20140127
  Serious: Yes (Life-Threatening)
  Sender: FDA-Public Use
  Company Number: 1209USA007057

PATIENT
  Sex: Female

DRUGS (1)
  1. IVANZ [Suspect]
     Indication: INFECTION

REACTIONS (1)
  - Convulsion [None]
